FAERS Safety Report 22368209 (Version 1)
Quarter: 2023Q2

REPORT INFORMATION
  Report Type: Spontaneous
  Country: CN (occurrence: None)
  Receive Date: 20230525
  Receipt Date: 20230525
  Transmission Date: 20230722
  Serious: Yes (Other)
  Sender: FDA-Public Use
  Company Number: 2023A116460

PATIENT
  Age: 86 Year
  Sex: Male
  Weight: 63 kg

DRUGS (5)
  1. DAPAGLIFLOZIN [Suspect]
     Active Substance: DAPAGLIFLOZIN
     Indication: Type 2 diabetes mellitus
     Route: 048
     Dates: start: 20230405, end: 20230516
  2. DAPAGLIFLOZIN [Suspect]
     Active Substance: DAPAGLIFLOZIN
     Indication: Type 2 diabetes mellitus
     Route: 048
     Dates: start: 20230419, end: 20230504
  3. MOSAPRIDE CITRATE [Concomitant]
     Active Substance: MOSAPRIDE CITRATE
     Indication: Peptic ulcer
     Route: 048
     Dates: start: 20230428, end: 20230505
  4. REBAMIPIDE [Concomitant]
     Active Substance: REBAMIPIDE
     Indication: Peptic ulcer
     Route: 048
     Dates: start: 20230502, end: 20230515
  5. BISMUTH [Concomitant]
     Active Substance: BISMUTH
     Indication: Peptic ulcer
     Route: 048
     Dates: start: 20230428, end: 20230505

REACTIONS (5)
  - Palpitations [Recovered/Resolved]
  - Hyperhidrosis [Recovered/Resolved]
  - Pain [Recovered/Resolved]
  - Asthenia [Recovered/Resolved]
  - Hypoglycaemia [Recovered/Resolved]

NARRATIVE: CASE EVENT DATE: 20230504
